FAERS Safety Report 7901400-5 (Version None)
Quarter: 2011Q4

REPORT INFORMATION
  Report Type: 
  Country: None (occurrence: None)
  Receive Date: 20111108
  Receipt Date: 20111104
  Transmission Date: 20120403
  Serious: No
  Sender: FDA-Public Use
  Company Number: US-PFIZER INC-2011271178

PATIENT
  Sex: Male
  Weight: 122 kg

DRUGS (2)
  1. CORDARONE [Suspect]
     Indication: CARDIAC FIBRILLATION
     Dosage: 400 MG, 2X/DAY
     Route: 048
     Dates: start: 20111102
  2. CORDARONE [Suspect]
     Indication: DYSPNOEA

REACTIONS (2)
  - FATIGUE [None]
  - CONSTIPATION [None]
